FAERS Safety Report 21768654 (Version 5)
Quarter: 2023Q1

REPORT INFORMATION
  Report Type: Spontaneous
  Country: CA (occurrence: CA)
  Receive Date: 20221222
  Receipt Date: 20230303
  Transmission Date: 20230418
  Serious: Yes (Hospitalization, Other)
  Sender: FDA-Public Use
  Company Number: CA-ALXN-A202215849

PATIENT
  Age: 32 Year
  Sex: Male

DRUGS (2)
  1. SOLIRIS [Suspect]
     Active Substance: ECULIZUMAB
     Indication: Off label use
     Dosage: 1200 MG, Q2W
     Route: 042
  2. SOLIRIS [Suspect]
     Active Substance: ECULIZUMAB
     Indication: Thrombotic microangiopathy
     Dosage: 900 MG, QW
     Route: 042

REACTIONS (4)
  - Staphylococcal infection [Unknown]
  - Enterococcal infection [Unknown]
  - Device related infection [Unknown]
  - Off label use [Unknown]

NARRATIVE: CASE EVENT DATE: 20221211
